FAERS Safety Report 23441179 (Version 2)
Quarter: 2024Q1

REPORT INFORMATION
  Report Type: Report from Study
  Country: US (occurrence: US)
  Receive Date: 20240125
  Receipt Date: 20240307
  Transmission Date: 20240409
  Serious: Yes (Disabling)
  Sender: FDA-Public Use
  Company Number: US-SA-SAC20240123001089

PATIENT
  Sex: Female
  Weight: 117.93 kg

DRUGS (12)
  1. DUPIXENT [Suspect]
     Active Substance: DUPILUMAB
     Indication: Illness
     Dosage: 300 MG, QOW
     Route: 058
  2. DUPIXENT [Suspect]
     Active Substance: DUPILUMAB
     Indication: Dermatitis atopic
     Dosage: 300 MG, QOW
     Route: 058
     Dates: start: 20240216
  3. CYMBALTA [Concomitant]
     Active Substance: DULOXETINE HYDROCHLORIDE
  4. VOLTAREN ARTHRITIS PAIN [Concomitant]
     Active Substance: DICLOFENAC SODIUM
     Dosage: UNK
  5. VICTOZA [Concomitant]
     Active Substance: LIRAGLUTIDE
     Dosage: 0.6 MG/0.1 PEN INJCTR
  6. SIMVASTATIN [Concomitant]
     Active Substance: SIMVASTATIN
     Dosage: UNK
  7. NYSTATIN [Concomitant]
     Active Substance: NYSTATIN
     Dosage: UNK
  8. GABAPENTIN [Concomitant]
     Active Substance: GABAPENTIN
     Dosage: UNK
  9. METFORMIN HYDROCHLORIDE [Concomitant]
     Active Substance: METFORMIN HYDROCHLORIDE
     Dosage: UNK
  10. MISOPROSTOL [Concomitant]
     Active Substance: MISOPROSTOL
     Dosage: UNK
  11. DICLOFENAC SODIUM [Concomitant]
     Active Substance: DICLOFENAC\DICLOFENAC SODIUM
     Dosage: UNK
  12. VITAMINS [Concomitant]
     Active Substance: VITAMINS

REACTIONS (4)
  - Wheelchair user [Unknown]
  - Eczema [Unknown]
  - Skin haemorrhage [Unknown]
  - Musculoskeletal discomfort [Unknown]
